FAERS Safety Report 9527710 (Version 1)
Quarter: 2013Q3

REPORT INFORMATION
  Report Type: Spontaneous
  Country: US (occurrence: US)
  Receive Date: 20130917
  Receipt Date: 20130917
  Transmission Date: 20140515
  Serious: No
  Sender: FDA-Public Use
  Company Number: US-009507513-1309USA005507

PATIENT
  Sex: 0

DRUGS (1)
  1. SAPHRIS [Suspect]
     Dosage: 2 DF, HS, 10 MG
     Route: 060
     Dates: start: 20130903

REACTIONS (3)
  - Drug dose omission [Unknown]
  - Product blister packaging issue [Unknown]
  - No adverse event [Unknown]
